FAERS Safety Report 25754657 (Version 3)
Quarter: 2025Q4

REPORT INFORMATION
  Report Type: Report from Study
  Country: US (occurrence: US)
  Receive Date: 20250903
  Receipt Date: 20251013
  Transmission Date: 20260117
  Serious: No
  Sender: JOHNSON AND JOHNSON
  Company Number: US-JNJFOC-20250836284

PATIENT
  Age: 42 Year
  Sex: Female

DRUGS (1)
  1. TREMFYA [Suspect]
     Active Substance: GUSELKUMAB
     Indication: Crohn^s disease
     Dosage: STRENGTH- 200.00 MG / 2.00 ML
     Route: 058
     Dates: start: 20250814

REACTIONS (2)
  - Device defective [Unknown]
  - Underdose [Unknown]

NARRATIVE: CASE EVENT DATE: 20250814
